FAERS Safety Report 14156813 (Version 1)
Quarter: 2017Q4

REPORT INFORMATION
  Report Type: Spontaneous
  Country: US (occurrence: US)
  Receive Date: 20171103
  Receipt Date: 20171103
  Transmission Date: 20180321
  Serious: Yes (Hospitalization)
  Sender: FDA-Public Use
  Company Number: US-INSYS THERAPEUTICS, INC-INS201710-000615

PATIENT
  Sex: Male

DRUGS (8)
  1. OMEPRAZOLE. [Concomitant]
     Active Substance: OMEPRAZOLE
  2. DILAUDID [Concomitant]
     Active Substance: HYDROMORPHONE HYDROCHLORIDE
  3. FERROUS GLUCONATE [Concomitant]
     Active Substance: FERROUS GLUCONATE
  4. LEVOTHYROXINE. [Concomitant]
     Active Substance: LEVOTHYROXINE
  5. OXYCONTIN [Concomitant]
     Active Substance: OXYCODONE HYDROCHLORIDE
  6. LORAZEPAM. [Concomitant]
     Active Substance: LORAZEPAM
  7. CYMBALTA [Concomitant]
     Active Substance: DULOXETINE HYDROCHLORIDE
  8. SUBSYS [Suspect]
     Active Substance: FENTANYL
     Indication: BREAKTHROUGH PAIN
     Dates: end: 20171017

REACTIONS (5)
  - Swelling face [Recovering/Resolving]
  - Lip swelling [Recovering/Resolving]
  - Urticaria [Recovering/Resolving]
  - Hypersensitivity [Unknown]
  - Eye swelling [Recovering/Resolving]
